FAERS Safety Report 4420151-5 (Version None)
Quarter: 2004Q3

REPORT INFORMATION
  Report Type: 
  Country: None (occurrence: None)
  Receive Date: 20040804
  Receipt Date: 20040726
  Transmission Date: 20050211
  Serious: Yes (Hospitalization)
  Sender: FDA-Public Use
  Company Number: DIB20040002

PATIENT
  Sex: Male
  Weight: 4.2 kg

DRUGS (3)
  1. PHENOXYBENZAMINE [Suspect]
     Indication: PHAEOCHROMOCYTOMA
     Dosage: 20MG BID
  2. BUPIVACAINE [Concomitant]
  3. FENTANYL [Concomitant]

REACTIONS (4)
  - CAESAREAN SECTION [None]
  - DRUG EXPOSURE DURING PREGNANCY [None]
  - NEONATAL RESPIRATORY DISTRESS SYNDROME [None]
  - SKIN DISORDER [None]
